FAERS Safety Report 8231249-8 (Version None)
Quarter: 2012Q1

REPORT INFORMATION
  Report Type: 
  Country: None (occurrence: None)
  Receive Date: 20120320
  Receipt Date: 20120305
  Transmission Date: 20120608
  Serious: Yes (Hospitalization)
  Sender: FDA-Public Use
  Company Number: 2012-000959

PATIENT
  Age: 52 Year
  Sex: Female

DRUGS (8)
  1. VITAMINS NOS (VITAMINS NOS) [Concomitant]
  2. RITALIN [Concomitant]
  3. CALCIUM CITRATE + D (CALCIUM CITRATE, COLECALCIFEROL) [Concomitant]
  4. BORON (BORON) [Concomitant]
  5. ESTRATEST [Concomitant]
  6. ATELVIA [Suspect]
     Indication: OSTEOPENIA
     Dosage: 35 MG ONCE WEEKLY, FIRST DOSE, ORAL
     Route: 048
     Dates: start: 20120304
  7. ALDACTONE [Concomitant]
  8. K /00031401/ (POTASSIUM) [Concomitant]

REACTIONS (29)
  - TREMOR [None]
  - WEIGHT INCREASED [None]
  - FEELING COLD [None]
  - DYSPNOEA [None]
  - ABDOMINAL PAIN [None]
  - CHEST PAIN [None]
  - SENSATION OF HEAVINESS [None]
  - JOINT STIFFNESS [None]
  - RHINORRHOEA [None]
  - BACK PAIN [None]
  - OESOPHAGITIS [None]
  - HYPOAESTHESIA [None]
  - EPISTAXIS [None]
  - HYPOPNOEA [None]
  - FAECES DISCOLOURED [None]
  - MUSCULAR WEAKNESS [None]
  - MUSCLE TWITCHING [None]
  - ATAXIA [None]
  - BONE PAIN [None]
  - CHEST DISCOMFORT [None]
  - INFLUENZA LIKE ILLNESS [None]
  - DECREASED APPETITE [None]
  - PARAESTHESIA [None]
  - MYALGIA [None]
  - FATIGUE [None]
  - FLATULENCE [None]
  - PYREXIA [None]
  - PAIN [None]
  - HEADACHE [None]
